FAERS Safety Report 16078401 (Version 1)
Quarter: 2019Q1

REPORT INFORMATION
  Report Type: Spontaneous
  Country: FR (occurrence: FR)
  Receive Date: 20190315
  Receipt Date: 20190315
  Transmission Date: 20190418
  Serious: Yes (Death, Hospitalization, Other)
  Sender: FDA-Public Use
  Company Number: FR-PFIZER INC-2019110724

PATIENT
  Age: 61 Year
  Sex: Male
  Weight: 92 kg

DRUGS (16)
  1. CARBOPLATIN. [Suspect]
     Active Substance: CARBOPLATIN
     Indication: SMALL CELL LUNG CANCER METASTATIC
     Dosage: UNK
     Route: 042
     Dates: start: 20090216, end: 20090216
  2. NEULASTA [Concomitant]
     Active Substance: PEGFILGRASTIM
     Dosage: UNK
     Route: 058
     Dates: start: 20090218
  3. FASTURTEC [Concomitant]
     Active Substance: RASBURICASE
     Dosage: 18.5 MG, SINGLE
     Route: 042
     Dates: start: 20090219
  4. AMIKACIN. [Concomitant]
     Active Substance: AMIKACIN
     Dosage: 1.5 G, 1X/DAY
     Route: 042
     Dates: start: 20090222, end: 20090228
  5. FUROSEMIDE. [Concomitant]
     Active Substance: FUROSEMIDE
     Dosage: 40 MG, 1X/DAY
  6. CONTRAMAL [Concomitant]
     Active Substance: TRAMADOL HYDROCHLORIDE
     Dosage: 100 MG, 1X/DAY
  7. CONTRAMAL [Concomitant]
     Active Substance: TRAMADOL HYDROCHLORIDE
     Dosage: 50 MG, 1X/DAY
  8. ATARAX [Concomitant]
     Active Substance: HYDROXYZINE HYDROCHLORIDE
     Dosage: 200 MG, 1X/DAY
     Route: 042
     Dates: start: 20090223, end: 20090227
  9. VEPESIDE [Suspect]
     Active Substance: ETOPOSIDE
     Indication: SMALL CELL LUNG CANCER METASTATIC
     Dosage: 150 MG, 1X/DAY
     Route: 041
     Dates: start: 20090216, end: 20090218
  10. DOSTINEX [Concomitant]
     Active Substance: CABERGOLINE
     Dosage: 0.5 MG, 1X/DAY
     Route: 048
     Dates: start: 20090219, end: 20090228
  11. TRIFLUCAN [Concomitant]
     Active Substance: FLUCONAZOLE
     Dosage: UNK
     Route: 042
     Dates: start: 20090222, end: 20090227
  12. INIPOMP [Concomitant]
     Active Substance: PANTOPRAZOLE SODIUM
     Dosage: UNK
     Route: 048
     Dates: start: 20090212, end: 20090227
  13. TAZOCILLINE [Concomitant]
     Active Substance: PIPERACILLIN SODIUM\TAZOBACTAM SODIUM
     Dosage: 4 G, 1X/DAY
     Route: 042
     Dates: start: 20090222, end: 20090228
  14. CRESTOR [Concomitant]
     Active Substance: ROSUVASTATIN CALCIUM
     Dosage: 5 MG, 1X/DAY
  15. TIAPRIDAL [Concomitant]
     Active Substance: TIAPRIDE HYDROCHLORIDE
     Dosage: 100 MG, 1X/DAY
     Route: 042
     Dates: start: 20090223, end: 20090223
  16. TAVANIC [Concomitant]
     Active Substance: LEVOFLOXACIN
     Dosage: UNK, SINGLE
     Dates: start: 20090216

REACTIONS (1)
  - Febrile bone marrow aplasia [Fatal]

NARRATIVE: CASE EVENT DATE: 20090222
